FAERS Safety Report 18397063 (Version 1)
Quarter: 2020Q4

REPORT INFORMATION
  Report Type: Spontaneous
  Country: IE (occurrence: IE)
  Receive Date: 20201019
  Receipt Date: 20201019
  Transmission Date: 20210114
  Serious: Yes (Life-Threatening, Hospitalization)
  Sender: FDA-Public Use
  Company Number: IE-TEVA-2020-IE-1838749

PATIENT
  Sex: Male

DRUGS (4)
  1. ATORVASTATIN (GENERIC) [Concomitant]
     Active Substance: ATORVASTATIN
     Indication: HYPERLIPIDAEMIA
     Dosage: 20 MG
     Route: 048
     Dates: start: 20180303, end: 20180324
  2. ZITHROMYCIN 500MG TABLET [Concomitant]
     Indication: LOWER RESPIRATORY TRACT INFECTION
     Dosage: 500 MG
     Dates: start: 20180303, end: 20180305
  3. DELTACORTRIL ENTERIC [Concomitant]
     Indication: INFLAMMATION
     Dosage: 6 TABLETS
     Route: 048
     Dates: start: 20180306, end: 20180310
  4. CLARITHROMYCIN (GENERIC) [Suspect]
     Active Substance: CLARITHROMYCIN
     Indication: LOWER RESPIRATORY TRACT INFECTION
     Dosage: 500 MG
     Route: 048
     Dates: start: 20180309, end: 20180316

REACTIONS (1)
  - Cardiac arrest [Not Recovered/Not Resolved]

NARRATIVE: CASE EVENT DATE: 20180312
